FAERS Safety Report 6564883-1 (Version None)
Quarter: 2010Q1

REPORT INFORMATION
  Report Type: 
  Country: None (occurrence: None)
  Receive Date: 20100201
  Receipt Date: 20100125
  Transmission Date: 20100710
  Serious: Yes (Death, Life-Threatening)
  Sender: FDA-Public Use
  Company Number: US-GILEAD-2010-0026546

PATIENT
  Sex: Female

DRUGS (14)
  1. LETAIRIS [Suspect]
     Indication: PULMONARY ARTERIAL HYPERTENSION
     Route: 048
     Dates: start: 20080520, end: 20100117
  2. REVATIO [Concomitant]
  3. IMURAN [Concomitant]
  4. LASIX [Concomitant]
  5. VASOTEC [Concomitant]
  6. PULMICORT [Concomitant]
  7. COMBIVENT [Concomitant]
  8. IMODIUM [Concomitant]
  9. ZITHROMAX [Concomitant]
  10. MUCINEX [Concomitant]
  11. TYLENOL-500 [Concomitant]
  12. NEXIUM [Concomitant]
  13. XANAX [Concomitant]
  14. DRAMAMINE [Concomitant]

REACTIONS (1)
  - RESPIRATORY FAILURE [None]
